FAERS Safety Report 9957982 (Version 1)
Quarter: 2014Q1

REPORT INFORMATION
  Report Type: Report from Study
  Country: US (occurrence: US)
  Receive Date: 20140304
  Receipt Date: 20140304
  Transmission Date: 20141002
  Serious: No
  Sender: FDA-Public Use
  Company Number: US-ABBVIE-13P-163-1091212-00

PATIENT
  Age: 40 Year
  Sex: Female

DRUGS (6)
  1. HUMIRA [Suspect]
     Indication: CROHN^S DISEASE
     Dates: start: 20130209
  2. CITALOPRAM [Concomitant]
     Indication: DEPRESSION
  3. CITALOPRAM [Concomitant]
     Indication: ANXIETY
  4. AZATHIOPRINE [Concomitant]
     Indication: CROHN^S DISEASE
  5. XANAX [Concomitant]
     Indication: ANXIETY
  6. BUDESONIDE [Concomitant]
     Indication: PRODUCT USED FOR UNKNOWN INDICATION

REACTIONS (2)
  - Abdominal distension [Unknown]
  - Constipation [Unknown]
